FAERS Safety Report 8992277 (Version 2)
Quarter: 2013Q1

REPORT INFORMATION
  Report Type: Spontaneous
  Country: US (occurrence: US)
  Receive Date: 20121231
  Receipt Date: 20130128
  Transmission Date: 20140127
  Serious: Yes (Hospitalization)
  Sender: FDA-Public Use
  Company Number: US-VERTEX PHARMACEUTICALS INC.-2012-026636

PATIENT
  Age: 55 Year
  Sex: Female
  Weight: 91 kg

DRUGS (8)
  1. INCIVEK [Suspect]
     Indication: HEPATITIS C
     Dosage: 750 MG, TID
     Route: 048
     Dates: start: 20121221
  2. COPEGUS [Suspect]
     Indication: HEPATITIS C
     Dosage: 600 MG, BID
     Route: 048
     Dates: start: 20121221
  3. PEGASYS [Suspect]
     Indication: HEPATITIS C
     Dosage: 180 ?G, QW
     Route: 058
     Dates: start: 20121221
  4. AMOXICILLIN [Concomitant]
     Indication: BACTERIAL INFECTION
     Dosage: 2 DF, BID
     Route: 048
     Dates: start: 20111221, end: 20120104
  5. NEXIUM [Concomitant]
     Indication: GASTROOESOPHAGEAL REFLUX DISEASE
     Dosage: UNK, QD
     Route: 048
  6. LEXAPRO [Concomitant]
     Indication: DEPRESSION
     Dosage: UNK, QD
     Route: 048
     Dates: start: 2007
  7. PREDNISONE [Concomitant]
     Indication: LOWER RESPIRATORY TRACT INFLAMMATION
     Route: 042
  8. FERRITIN [Concomitant]
     Indication: ANAEMIA
     Route: 048

REACTIONS (6)
  - Pneumonia [Recovered/Resolved]
  - Local swelling [Recovered/Resolved]
  - Anaemia [Recovered/Resolved]
  - Body temperature increased [Recovered/Resolved]
  - Dizziness [Recovered/Resolved]
  - Asthenia [Recovered/Resolved]
